FAERS Safety Report 25613610 (Version 2)
Quarter: 2025Q3

REPORT INFORMATION
  Report Type: Report from Study
  Country: US (occurrence: US)
  Receive Date: 20250728
  Receipt Date: 20250805
  Transmission Date: 20251020
  Serious: No
  Sender: IPSEN BIOPHARMACEUTICALS, INC.
  Company Number: US-IPSEN Group, Research and Development-2025-18143

PATIENT
  Age: 54 Year
  Sex: Female

DRUGS (8)
  1. IQIRVO [Suspect]
     Active Substance: ELAFIBRANOR
     Indication: Primary biliary cholangitis
     Dates: start: 20250227
  2. HYDROXYZINE [Concomitant]
     Active Substance: HYDROXYZINE HYDROCHLORIDE
  3. PROTONIX [Concomitant]
     Active Substance: PANTOPRAZOLE SODIUM
  4. BACLOFEN [Concomitant]
     Active Substance: BACLOFEN
  5. GABAPENTIN [Concomitant]
     Active Substance: GABAPENTIN
  6. SERTRALINE [Concomitant]
     Active Substance: SERTRALINE HYDROCHLORIDE
  7. URSODIOL [Concomitant]
     Active Substance: URSODIOL
  8. BIOTIN [Concomitant]
     Active Substance: BIOTIN

REACTIONS (2)
  - Sunburn [Not Recovered/Not Resolved]
  - Vertigo [Not Recovered/Not Resolved]
